FAERS Safety Report 16543087 (Version 1)
Quarter: 2019Q3

REPORT INFORMATION
  Report Type: Spontaneous
  Country: US (occurrence: US)
  Receive Date: 20190709
  Receipt Date: 20190709
  Transmission Date: 20191004
  Serious: Yes (Hospitalization, Other)
  Sender: FDA-Public Use
  Company Number: US-SA-2019SA182236

PATIENT
  Age: 62 Year
  Sex: Female

DRUGS (7)
  1. TOCILIZUMAB. [Suspect]
     Active Substance: TOCILIZUMAB
     Indication: RHEUMATOID ARTHRITIS
     Dosage: 4 MG/KG; EIGHT DOSES
  2. METHOTREXATE. [Suspect]
     Active Substance: METHOTREXATE
     Indication: RHEUMATOID ARTHRITIS
     Dosage: 20 MG, QW
     Route: 058
  3. PREDNISONE. [Suspect]
     Active Substance: PREDNISONE
     Indication: RHEUMATOID ARTHRITIS
     Dosage: 5 MG, QD
     Route: 048
  4. ADALIMUMAB [Suspect]
     Active Substance: ADALIMUMAB
     Indication: RHEUMATOID ARTHRITIS
     Dosage: 40 MG, QOW
  5. RIFAMPICIN [Suspect]
     Active Substance: RIFAMPIN
     Indication: TUBERCULOID LEPROSY
     Dosage: 600 MG, QD
     Route: 048
  6. ETANERCEPT [Suspect]
     Active Substance: ETANERCEPT
     Indication: RHEUMATOID ARTHRITIS
     Dosage: 50 MG, QW
  7. TOCILIZUMAB. [Suspect]
     Active Substance: TOCILIZUMAB
     Dosage: 8 MG/KG, QM

REACTIONS (8)
  - Tuberculoid leprosy [Recovering/Resolving]
  - Hypoaesthesia [Not Recovered/Not Resolved]
  - Neuropathic ulcer [Recovered/Resolved]
  - Rash maculo-papular [Recovered/Resolved]
  - Peripheral sensorimotor neuropathy [Recovered/Resolved]
  - Paraesthesia [Not Recovered/Not Resolved]
  - Vomiting [Unknown]
  - Nausea [Unknown]
